FAERS Safety Report 24826779 (Version 1)
Quarter: 2025Q1

REPORT INFORMATION
  Report Type: Spontaneous
  Country: US (occurrence: US)
  Receive Date: 20250109
  Receipt Date: 20250109
  Transmission Date: 20250408
  Serious: Yes (Other)
  Sender: COOPERSURGICAL
  Company Number: US-COOPERSURGICAL, INC.-US-2024CPS000748

PATIENT
  Sex: Female
  Weight: 135.1 kg

DRUGS (1)
  1. PARAGARD T 380A [Suspect]
     Active Substance: COPPER
     Indication: Contraception
     Route: 015
     Dates: start: 202211, end: 20240125

REACTIONS (7)
  - Abortion missed [Unknown]
  - Pregnancy with contraceptive device [Unknown]
  - Complication of device removal [Not Recovered/Not Resolved]
  - Device issue [Recovered/Resolved]
  - Device dislocation [Recovered/Resolved]
  - Device expulsion [Recovered/Resolved]
  - Drug ineffective [Unknown]

NARRATIVE: CASE EVENT DATE: 20231201
